FAERS Safety Report 13410860 (Version 4)
Quarter: 2024Q2

REPORT INFORMATION
  Report Type: Spontaneous
  Country: US (occurrence: US)
  Receive Date: 20170406
  Receipt Date: 20240418
  Transmission Date: 20240715
  Serious: No
  Sender: FDA-Public Use
  Company Number: US-JNJFOC-20170300078

PATIENT
  Age: 16 Year
  Sex: Male

DRUGS (6)
  1. RISPERDAL [Suspect]
     Active Substance: RISPERIDONE
     Indication: Psychotic disorder
     Route: 048
     Dates: start: 20060530, end: 20090827
  2. RISPERDAL [Suspect]
     Active Substance: RISPERIDONE
     Indication: Affective disorder
     Route: 048
     Dates: start: 20060714, end: 20061006
  3. RISPERDAL M-TAB [Suspect]
     Active Substance: RISPERIDONE
     Indication: Affective disorder
     Dosage: VARYING DOSES OF 1 MG A, 2 MG WITH VARYING FREQUENCIES (TWICE DAILY AND EVERY HOUR OF SLEEP)
     Route: 048
     Dates: start: 20060530, end: 20070630
  4. RISPERDAL M-TAB [Suspect]
     Active Substance: RISPERIDONE
     Indication: Psychotic disorder
     Route: 048
     Dates: start: 200707
  5. INVEGA [Suspect]
     Active Substance: PALIPERIDONE
     Indication: Psychotic disorder
     Dosage: VARYING DOSES OF 3 MG, 6 MG, 9 MG, WITH VARYING FREQUENCY (ONCE DAILY AND TWICE DAILY)
     Route: 048
     Dates: start: 20070724, end: 20090827
  6. INVEGA [Suspect]
     Active Substance: PALIPERIDONE
     Indication: Affective disorder

REACTIONS (5)
  - Gynaecomastia [Unknown]
  - Emotional distress [Unknown]
  - Increased appetite [Unknown]
  - Hypersomnia [Unknown]
  - Off label use [Unknown]

NARRATIVE: CASE EVENT DATE: 20070701
